FAERS Safety Report 8430454-5 (Version None)
Quarter: 2012Q2

REPORT INFORMATION
  Report Type: 
  Country: None (occurrence: None)
  Receive Date: 20120323
  Receipt Date: 20111003
  Transmission Date: 20120825
  Serious: Yes (Hospitalization, Other)
  Sender: FDA-Public Use
  Company Number: 163-21880-11073072

PATIENT
  Age: 55 Year
  Sex: Male
  Weight: 139 kg

DRUGS (6)
  1. DECADRON [Concomitant]
  2. REVLIMID [Suspect]
     Indication: MULTIPLE MYELOMA
     Dosage: 10;25;5 MG, 1 IN 1 D, PO
     Route: 048
     Dates: start: 20081125
  3. REVLIMID [Suspect]
     Indication: MULTIPLE MYELOMA
     Dosage: 10;25;5 MG, 1 IN 1 D, PO
     Route: 048
     Dates: start: 20100301
  4. REVLIMID [Suspect]
     Indication: MULTIPLE MYELOMA
     Dosage: 10;25;5 MG, 1 IN 1 D, PO
     Route: 048
     Dates: start: 20090501
  5. REVLIMID [Suspect]
     Indication: MULTIPLE MYELOMA
     Dosage: 10;25;5 MG, 1 IN 1 D, PO
     Route: 048
     Dates: start: 20100401
  6. REVLIMID [Suspect]

REACTIONS (1)
  - DEEP VEIN THROMBOSIS [None]
